FAERS Safety Report 14251394 (Version 2)
Quarter: 2017Q4

REPORT INFORMATION
  Report Type: Spontaneous
  Country: JP (occurrence: JP)
  Receive Date: 20171205
  Receipt Date: 20171227
  Transmission Date: 20180321
  Serious: Yes (Other)
  Sender: FDA-Public Use
  Company Number: JP-JNJFOC-20171129584

PATIENT
  Age: 7 Decade
  Sex: Male

DRUGS (6)
  1. POTASSIUM-MAGNESIUM-L-ASPARAGINATE [Concomitant]
     Route: 065
  2. GONAX [Concomitant]
     Active Substance: DEGARELIX
     Route: 065
  3. URIEF [Concomitant]
     Active Substance: SILODOSIN
     Route: 048
  4. ZYTIGA [Suspect]
     Active Substance: ABIRATERONE ACETATE
     Indication: PROSTATE CANCER
     Route: 048
     Dates: start: 20161018, end: 201712
  5. PREDONINE [Suspect]
     Active Substance: PREDNISOLONE
     Indication: PROSTATE CANCER
     Route: 048
     Dates: end: 20161017
  6. PREDONINE [Suspect]
     Active Substance: PREDNISOLONE
     Indication: PROSTATE CANCER
     Route: 048
     Dates: start: 20161018, end: 201712

REACTIONS (2)
  - Haemorrhage subcutaneous [Unknown]
  - Purpura [Unknown]

NARRATIVE: CASE EVENT DATE: 20170604
